FAERS Safety Report 11218049 (Version 1)
Quarter: 2015Q2

REPORT INFORMATION
  Report Type: Spontaneous
  Country: TR (occurrence: TR)
  Receive Date: 20150625
  Receipt Date: 20150625
  Transmission Date: 20150821
  Serious: Yes (Death)
  Sender: FDA-Public Use
  Company Number: TR-ACTAVIS-2015-12612

PATIENT
  Age: 56 Year
  Sex: Male

DRUGS (14)
  1. VANCOMYCIN (UNKNOWN) [Suspect]
     Active Substance: VANCOMYCIN
     Indication: FEBRILE NEUTROPENIA
  2. IDARUBICIN [Suspect]
     Active Substance: IDARUBICIN
     Indication: ACUTE MYELOID LEUKAEMIA
     Dosage: UNK
     Route: 065
  3. RIFAMPICIN (UNKNOWN) [Suspect]
     Active Substance: RIFAMPIN
     Indication: FEBRILE NEUTROPENIA
  4. MEROPENEM (UNKNOWN) [Suspect]
     Active Substance: MEROPENEM
     Indication: FEBRILE NEUTROPENIA
  5. PIPERACILLIN AND TAZOBACTAM [Suspect]
     Active Substance: PIPERACILLIN SODIUM\TAZOBACTAM SODIUM
     Indication: BRUCELLOSIS
     Dosage: UNK
     Route: 065
  6. DOXYCYCLINE HYCLATE. [Suspect]
     Active Substance: DOXYCYCLINE HYCLATE
     Indication: FEBRILE NEUTROPENIA
  7. LINEZOLID (UNKNOWN) [Suspect]
     Active Substance: LINEZOLID
     Indication: FEBRILE NEUTROPENIA
  8. CYTARABINE (UNKNOWN) [Suspect]
     Active Substance: CYTARABINE
     Indication: ACUTE MYELOID LEUKAEMIA
     Dosage: UNK
     Route: 065
  9. DOXYCYCLINE HYCLATE. [Suspect]
     Active Substance: DOXYCYCLINE HYCLATE
     Indication: BRUCELLOSIS
     Dosage: UNK
     Route: 065
  10. RIFAMPICIN (UNKNOWN) [Suspect]
     Active Substance: RIFAMPIN
     Indication: BRUCELLOSIS
     Dosage: UNK
     Route: 065
  11. VANCOMYCIN (UNKNOWN) [Suspect]
     Active Substance: VANCOMYCIN
     Indication: BRUCELLOSIS
     Dosage: UNK
     Route: 065
  12. MEROPENEM (UNKNOWN) [Suspect]
     Active Substance: MEROPENEM
     Indication: BRUCELLOSIS
     Dosage: UNK
     Route: 065
  13. LINEZOLID (UNKNOWN) [Suspect]
     Active Substance: LINEZOLID
     Indication: BRUCELLOSIS
     Dosage: UNK
     Route: 065
  14. PIPERACILLIN AND TAZOBACTAM [Suspect]
     Active Substance: PIPERACILLIN SODIUM\TAZOBACTAM SODIUM
     Indication: FEBRILE NEUTROPENIA

REACTIONS (4)
  - Brucellosis [Fatal]
  - Septic shock [Fatal]
  - Treatment failure [Fatal]
  - Febrile neutropenia [Fatal]
